FAERS Safety Report 7497874-7 (Version None)
Quarter: 2011Q2

REPORT INFORMATION
  Report Type: 
  Country: None (occurrence: None)
  Receive Date: 20110524
  Receipt Date: 20081019
  Transmission Date: 20111010
  Serious: Yes (Hospitalization, Disabling, Other)
  Sender: FDA-Public Use
  Company Number: US-BAYER-200836213NA

PATIENT
  Age: 45 Year
  Sex: Male
  Weight: 98 kg

DRUGS (11)
  1. MANNITOL [Concomitant]
     Dosage: UNK
     Route: 042
     Dates: start: 20000925, end: 20000925
  2. TRASYLOL [Suspect]
     Indication: HEART VALVE REPLACEMENT
     Dosage: 2 ML, INITIAL DOSE
     Route: 042
     Dates: start: 20000925, end: 20000925
  3. ACCURETIC [Concomitant]
     Dosage: 20 / 12.5MG DAILY
     Route: 048
  4. HEPARIN [Concomitant]
     Dosage: 10000 U, UNK
     Route: 042
     Dates: start: 20000925, end: 20000925
  5. AZITHROMYCIN [Concomitant]
     Dosage: 2 G, UNK
     Route: 042
     Dates: start: 20000925, end: 20000925
  6. FRESH FROZEN PLASMA [Concomitant]
     Dosage: 2 U, UNK
     Route: 042
     Dates: start: 20000925, end: 20000925
  7. TRASYLOL [Suspect]
     Indication: AORTIC SURGERY
     Dosage: 500 K UNITS/HR LOADING DOSE
     Route: 042
     Dates: start: 20000925, end: 20000925
  8. VANCOMYCIN [Concomitant]
     Dosage: 1 G, UNK
     Route: 042
     Dates: start: 20000925, end: 20000925
  9. RED BLOOD CELLS [Concomitant]
     Dosage: 3 U, UNK
     Route: 042
     Dates: start: 20000925, end: 20000925
  10. PLATELETS [Concomitant]
     Dosage: 1 U, UNK
     Route: 042
     Dates: start: 20000925, end: 20000925
  11. ATENOLOL [Concomitant]
     Dosage: 25 MG, QD
     Route: 048

REACTIONS (11)
  - HEMIPARESIS [None]
  - UNEVALUABLE EVENT [None]
  - MOTOR DYSFUNCTION [None]
  - PAIN [None]
  - HYPOAESTHESIA [None]
  - INSOMNIA [None]
  - SPEECH DISORDER [None]
  - INJURY [None]
  - EMOTIONAL DISTRESS [None]
  - BALANCE DISORDER [None]
  - EMBOLIC STROKE [None]
